FAERS Safety Report 23663527 (Version 2)
Quarter: 2024Q3

REPORT INFORMATION
  Report Type: Spontaneous
  Country: US (occurrence: US)
  Receive Date: 20240322
  Receipt Date: 20240830
  Transmission Date: 20241016
  Serious: No
  Sender: SANOFI AVENTIS
  Company Number: US-SA-2024SA088734

PATIENT
  Sex: Female

DRUGS (2)
  1. DUPIXENT [Suspect]
     Active Substance: DUPILUMAB
     Indication: Dermatitis atopic
     Dosage: 600 MG, 1X
     Route: 058
  2. DUPIXENT [Suspect]
     Active Substance: DUPILUMAB
     Indication: Haemolytic uraemic syndrome
     Dosage: 300 MG, QOW
     Route: 058

REACTIONS (1)
  - Drug ineffective for unapproved indication [Unknown]
